FAERS Safety Report 23972880 (Version 1)
Quarter: 2024Q2

REPORT INFORMATION
  Report Type: Report from Study
  Country: US (occurrence: US)
  Receive Date: 20240613
  Receipt Date: 20240613
  Transmission Date: 20240716
  Serious: Yes (Other)
  Sender: FDA-Public Use
  Company Number: US-TAKEDA-2023TUS033990

PATIENT
  Sex: Female

DRUGS (2)
  1. MARIBAVIR [Suspect]
     Active Substance: MARIBAVIR
     Indication: Cytomegalovirus infection
     Dosage: 400 MILLIGRAM, BID
     Route: 048
     Dates: start: 20230329
  2. MARIBAVIR [Suspect]
     Active Substance: MARIBAVIR
     Dosage: 200 MILLIGRAM, BID
     Route: 048
     Dates: end: 20240522

REACTIONS (8)
  - Cytomegalovirus infection reactivation [Recovered/Resolved]
  - Rhinorrhoea [Recovering/Resolving]
  - Asthenia [Recovering/Resolving]
  - Retching [Unknown]
  - Illness [Unknown]
  - Fatigue [Recovering/Resolving]
  - Ageusia [Unknown]
  - Diarrhoea [Unknown]
